FAERS Safety Report 8192068-4 (Version None)
Quarter: 2012Q1

REPORT INFORMATION
  Report Type: 
  Country: None (occurrence: None)
  Receive Date: 20120307
  Receipt Date: 20120305
  Transmission Date: 20120608
  Serious: Yes (Life-Threatening)
  Sender: FDA-Public Use
  Company Number: DE-B.I. PHARMACEUTICALS,INC./RIDGEFIELD-2012-DE-00660DE

PATIENT
  Sex: Female

DRUGS (4)
  1. PANTOPRAZOLE [Concomitant]
     Dosage: 2 ANZ
     Route: 048
  2. PRADAXA [Suspect]
     Indication: ATRIAL FIBRILLATION
     Dosage: 220 MG
     Route: 048
     Dates: end: 20120229
  3. BISOPROLOL FUMARATE [Concomitant]
     Dosage: 1 ANZ
     Route: 048
  4. ENALAPRIL MALEATE [Concomitant]
     Dosage: 2 ANZ
     Route: 048

REACTIONS (4)
  - DEHYDRATION [None]
  - SMALL INTESTINAL HAEMORRHAGE [None]
  - CIRCULATORY COLLAPSE [None]
  - HAEMOGLOBIN DECREASED [None]
